FAERS Safety Report 16094952 (Version 1)
Quarter: 2019Q2

REPORT INFORMATION
  Report Type: Spontaneous
  Country: US (occurrence: US)
  Receive Date: 20190312
  Receipt Date: 20190312
  Transmission Date: 20190711
  Serious: Yes (Other)
  Sender: FDA-Public Use
  Company Number: None

PATIENT
  Age: 35 Year
  Sex: Female
  Weight: 63.5 kg

DRUGS (12)
  1. OMPREZALONE [Concomitant]
  2. BOTOX [Concomitant]
     Active Substance: ONABOTULINUMTOXINA
  3. OXYCODONE [Concomitant]
     Active Substance: OXYCODONE
  4. FLINTSTONE COMPLETE [Concomitant]
  5. PHOSPHORUS [Concomitant]
     Active Substance: PHOSPHORUS
  6. NEXPLANON [Suspect]
     Active Substance: ETONOGESTREL
     Dates: start: 20160729, end: 20190308
  7. MAGNESIUM [Concomitant]
     Active Substance: MAGNESIUM
  8. CALCIUM PLUS D3 [Concomitant]
  9. TYLENOL [Concomitant]
     Active Substance: ACETAMINOPHEN
  10. FLUOXETINE [Concomitant]
     Active Substance: FLUOXETINE HYDROCHLORIDE
  11. ZYRTEC [Concomitant]
     Active Substance: CETIRIZINE HYDROCHLORIDE
  12. RIZATRIPTAN. [Concomitant]
     Active Substance: RIZATRIPTAN

REACTIONS (2)
  - Unintended pregnancy [None]
  - Pregnancy with implant contraceptive [None]

NARRATIVE: CASE EVENT DATE: 20190211
